FAERS Safety Report 8543911 (Version 4)
Quarter: 2013Q2

REPORT INFORMATION
  Report Type: Spontaneous
  Country: US (occurrence: US)
  Receive Date: 20120315
  Receipt Date: 20130405
  Transmission Date: 20140414
  Serious: Yes (Hospitalization, Other)
  Sender: FDA-Public Use
  Company Number: PHHY2011US11639

PATIENT
  Age: 61 Year
  Sex: Female
  Weight: 60.77 kg

DRUGS (19)
  1. GILENYA [Suspect]
     Indication: MULTIPLE SCLEROSIS
     Dosage: 0.5 MG, QD
     Route: 048
     Dates: start: 20110125, end: 20110527
  2. TYSABRI [Concomitant]
     Dosage: UNK, QMO
  3. NEXIUM [Concomitant]
     Dosage: 40 MG, PRN
     Route: 048
  4. NORCO [Concomitant]
     Indication: PAIN
  5. NUEDEXTA [Concomitant]
  6. PAXIL [Concomitant]
     Dosage: 30 MG, DAILY
  7. PENTASA [Concomitant]
     Dosage: 500 MG, BID
  8. PENTASA [Concomitant]
     Dosage: 1000 MG, BID
  9. XANAX [Concomitant]
     Dosage: 0.25 MG, TID
  10. ZYRTEC [Concomitant]
     Dosage: 10 MG, PRN
  11. AMBIEN [Concomitant]
     Dosage: 10 MG, PRN
  12. KLOR-CON [Concomitant]
     Dosage: 20 MG, BID
  13. REFRESH PLUS [Concomitant]
     Indication: DRY EYE
  14. SENOKOT [Concomitant]
  15. ATIVAN [Concomitant]
     Dosage: 0.5 MG, EVERY 6 HRS
     Route: 048
  16. TRAZODONE [Concomitant]
     Dosage: 100 MG, QD
     Route: 048
  17. NALTREXONE [Concomitant]
     Dosage: 4 MG, QD
  18. VALIUM [Concomitant]
     Indication: ANXIETY
     Dosage: 5 MG, PRN
  19. ACETAMINOPHEN [Concomitant]
     Dosage: 325 MG, UNK
     Route: 048

REACTIONS (51)
  - Multiple sclerosis [Unknown]
  - General physical health deterioration [Unknown]
  - Demyelination [Unknown]
  - Dementia [Unknown]
  - Visual impairment [Unknown]
  - Paralysis [Unknown]
  - Slow response to stimuli [Unknown]
  - Somnolence [Unknown]
  - Faecal incontinence [Unknown]
  - Hypoaesthesia [Unknown]
  - Hearing impaired [Unknown]
  - Muscular weakness [Unknown]
  - Urinary incontinence [Unknown]
  - Confusional state [Unknown]
  - Fall [Unknown]
  - Lethargy [Unknown]
  - Pain [Unknown]
  - Speech disorder [Unknown]
  - Dyspnoea exertional [Unknown]
  - Dyspnoea [Unknown]
  - Dysphagia [Unknown]
  - Eating disorder [Unknown]
  - Weight decreased [Unknown]
  - Multiple sclerosis relapse [Not Recovered/Not Resolved]
  - Fatigue [Not Recovered/Not Resolved]
  - Gait disturbance [Not Recovered/Not Resolved]
  - Cognitive disorder [Not Recovered/Not Resolved]
  - Central nervous system lesion [Unknown]
  - Musculoskeletal disorder [Unknown]
  - Depressed level of consciousness [Unknown]
  - Hypokinesia [Unknown]
  - Balance disorder [Unknown]
  - Asthenia [Unknown]
  - Anxiety [Unknown]
  - Gastritis [Unknown]
  - Blindness [Unknown]
  - Fracture [Unknown]
  - Coma [Unknown]
  - Apnoea [Unknown]
  - Pyrexia [Unknown]
  - Abdominal pain [Unknown]
  - Urinary tract infection [Unknown]
  - Dry skin [Unknown]
  - Decubitus ulcer [Unknown]
  - Skin disorder [Unknown]
  - Lid sulcus deepened [Unknown]
  - Constipation [Unknown]
  - Malaise [Unknown]
  - Vomiting [Unknown]
  - Blood pressure systolic increased [Recovered/Resolved]
  - Drug ineffective [Unknown]
